FAERS Safety Report 5340820-2 (Version None)
Quarter: 2007Q2

REPORT INFORMATION
  Report Type: 
  Country: None (occurrence: None)
  Receive Date: 20070405
  Receipt Date: 20061113
  Transmission Date: 20071010
  Serious: Yes (Other)
  Sender: FDA-Public Use
  Company Number: US200607002705

PATIENT
  Age: 51 Year
  Sex: Female

DRUGS (3)
  1. CYMBALTA [Suspect]
     Indication: DEPRESSION
     Dosage: 30 MG
     Dates: start: 20060512, end: 20060520
  2. TRAZODONE HCL [Concomitant]
  3. METHADONE HCL [Concomitant]

REACTIONS (1)
  - SUICIDAL IDEATION [None]
